FAERS Safety Report 9786577 (Version 2)
Quarter: 2013Q4

REPORT INFORMATION
  Report Type: Spontaneous
  Country: US (occurrence: US)
  Receive Date: 20131227
  Receipt Date: 20131227
  Transmission Date: 20140711
  Serious: Yes (Other)
  Sender: FDA-Public Use
  Company Number: CHPA2013US012974

PATIENT
  Age: 58 Year
  Sex: Female

DRUGS (4)
  1. VOLTAREN GEL [Suspect]
     Indication: ARTHRALGIA
     Dosage: 2 G, BID
     Route: 061
     Dates: start: 201307
  2. VOLTAREN GEL [Suspect]
     Indication: BONE DISORDER
  3. VOLTAREN GEL [Suspect]
     Indication: OFF LABEL USE
  4. OXYCONTIN [Concomitant]
     Indication: PAIN
     Dosage: UNK
     Route: 048

REACTIONS (3)
  - Bone disorder [Not Recovered/Not Resolved]
  - Spinal pain [Unknown]
  - Wrong technique in drug usage process [Unknown]
